FAERS Safety Report 13695679 (Version 1)
Quarter: 2017Q2

REPORT INFORMATION
  Report Type: Spontaneous
  Country: US (occurrence: US)
  Receive Date: 20170627
  Receipt Date: 20170627
  Transmission Date: 20170830
  Serious: Yes (Hospitalization)
  Sender: FDA-Public Use
  Company Number: US-MYLANLABS-2017M1037385

PATIENT

DRUGS (3)
  1. MORPHINE [Suspect]
     Active Substance: MORPHINE
     Indication: BACK PAIN
     Dosage: 31.975 MG/DAY SIMPLE CONTINUOUS RATE FOR PAST 7 YEARS
     Route: 037
  2. PRIMIDONE. [Concomitant]
     Active Substance: PRIMIDONE
     Indication: SEIZURE
     Dosage: 50 MG EVERY 8 HOURS
     Route: 048
  3. BACLOFEN. [Concomitant]
     Active Substance: BACLOFEN
     Indication: MUSCLE SPASTICITY
     Dosage: 10 MG EVERY 6 HOURS
     Route: 048

REACTIONS (3)
  - Device failure [Recovered/Resolved]
  - Psychotic disorder [Recovered/Resolved]
  - Drug withdrawal syndrome [Recovered/Resolved]
